FAERS Safety Report 9832311 (Version 1)
Quarter: 2014Q1

REPORT INFORMATION
  Report Type: Spontaneous
  Country: US (occurrence: US)
  Receive Date: 20140121
  Receipt Date: 20140121
  Transmission Date: 20141002
  Serious: No
  Sender: FDA-Public Use
  Company Number: US-GLAXOSMITHKLINE-A1022812A

PATIENT
  Age: 66 Year
  Sex: Male

DRUGS (8)
  1. AVANDARYL [Suspect]
     Indication: TYPE 2 DIABETES MELLITUS
     Dosage: 1TAB PER DAY
     Route: 048
     Dates: start: 201210, end: 20130507
  2. HYDROCHLOROTHIAZIDE + LISINOPRIL [Concomitant]
  3. ATENOLOL [Concomitant]
  4. GLIMEPIRIDE [Concomitant]
  5. VERAPAMIL [Concomitant]
  6. METFORMIN [Concomitant]
  7. GLYBURIDE [Concomitant]
  8. SIMVASTATIN [Concomitant]

REACTIONS (4)
  - Dyspnoea [Recovered/Resolved]
  - Local swelling [Recovered/Resolved]
  - Weight increased [Recovered/Resolved]
  - Fatigue [Recovered/Resolved]
